FAERS Safety Report 8840184 (Version 1)
Quarter: 2012Q4

REPORT INFORMATION
  Report Type: 
  Country: US (occurrence: US)
  Receive Date: 20121015
  Receipt Date: 20121015
  Transmission Date: 20130627
  Serious: Yes (Other)
  Sender: FDA-Public Use
  Company Number: US-ASTRAZENECA-2012SE76898

PATIENT
  Age: 34 Year
  Sex: Female
  Weight: 82.1 kg

DRUGS (1)
  1. SYMBICORT PMDI [Suspect]
     Dosage: 160/4.5 MCG, DAILY
     Route: 055
     Dates: start: 2009

REACTIONS (2)
  - Cataract [Unknown]
  - Nervousness [Unknown]
